FAERS Safety Report 16900231 (Version 1)
Quarter: 2019Q4

REPORT INFORMATION
  Report Type: Spontaneous
  Country: US (occurrence: US)
  Receive Date: 20191009
  Receipt Date: 20191009
  Transmission Date: 20200122
  Serious: No
  Sender: FDA-Public Use
  Company Number: US-BAYER-2019-180078

PATIENT
  Age: 34 Year
  Sex: Female

DRUGS (2)
  1. MIRENA [Suspect]
     Active Substance: LEVONORGESTREL
     Indication: ENDOMETRIOSIS
     Dosage: 20 MCG/24HR, CONT
     Route: 015
     Dates: start: 20191002
  2. MIRENA [Suspect]
     Active Substance: LEVONORGESTREL
     Indication: ENDOMETRIOSIS
     Dosage: UNK

REACTIONS (5)
  - Device use issue [None]
  - Post procedural discomfort [None]
  - Device malfunction [None]
  - Product quality issue [None]
  - Off label use of device [None]
